FAERS Safety Report 6828376-6 (Version None)
Quarter: 2010Q3

REPORT INFORMATION
  Report Type: 
  Country: None (occurrence: None)
  Receive Date: 20100709
  Receipt Date: 20070209
  Transmission Date: 20110219
  Serious: No
  Sender: FDA-Public Use
  Company Number: US-PFIZER INC-2007007302

PATIENT
  Sex: Female
  Weight: 74.84 kg

DRUGS (5)
  1. CHANTIX [Suspect]
     Indication: SMOKING CESSATION THERAPY
     Dates: start: 20070124
  2. DRUG, UNSPECIFIED [Concomitant]
  3. ESTROTEST [Concomitant]
  4. PREDNISONE [Concomitant]
  5. SONATA [Concomitant]
     Indication: INSOMNIA
     Dates: start: 20070123

REACTIONS (4)
  - DRY MOUTH [None]
  - INSOMNIA [None]
  - NAUSEA [None]
  - NERVOUSNESS [None]
